FAERS Safety Report 23783675 (Version 2)
Quarter: 2025Q2

REPORT INFORMATION
  Report Type: Report from Study
  Country: US (occurrence: US)
  Receive Date: 20240425
  Receipt Date: 20250613
  Transmission Date: 20250717
  Serious: Yes (Hospitalization)
  Sender: SANOFI AVENTIS
  Company Number: US-SA-SAC20240423000405

PATIENT
  Age: 79 Year
  Sex: Female

DRUGS (2)
  1. SARILUMAB [Suspect]
     Active Substance: SARILUMAB
     Indication: Rheumatoid arthritis
     Dosage: 200 MG, QOW
     Route: 058
     Dates: start: 20231130, end: 20240422
  2. SARILUMAB [Suspect]
     Active Substance: SARILUMAB
     Indication: Polymyalgia rheumatica
     Dosage: 200 MG, QOW
     Route: 058

REACTIONS (7)
  - Cellulitis [Unknown]
  - Skin ulcer [Unknown]
  - Diabetic foot [Unknown]
  - Weight decreased [Unknown]
  - Alopecia [Unknown]
  - Skin exfoliation [Unknown]
  - Decreased appetite [Unknown]
